FAERS Safety Report 24954498 (Version 1)
Quarter: 2025Q1

REPORT INFORMATION
  Report Type: Spontaneous
  Country: US (occurrence: US)
  Receive Date: 20250211
  Receipt Date: 20250211
  Transmission Date: 20250409
  Serious: No
  Sender: LEO PHARM
  Company Number: US-LEO Pharma-377503

PATIENT
  Age: 15 Year
  Sex: Female

DRUGS (1)
  1. ADBRY [Suspect]
     Active Substance: TRALOKINUMAB-LDRM
     Indication: Dermatitis atopic
     Dosage: STARTED TAKING ADBRY 12/2024
     Dates: start: 202412

REACTIONS (3)
  - Injection site reaction [Unknown]
  - Malaise [Unknown]
  - Mental status changes [Unknown]
